FAERS Safety Report 22170251 (Version 10)
Quarter: 2023Q2

REPORT INFORMATION
  Report Type: Report from Study
  Country: CL (occurrence: CL)
  Receive Date: 20230404
  Receipt Date: 20230525
  Transmission Date: 20230721
  Serious: Yes (Disabling)
  Sender: FDA-Public Use
  Company Number: CL-002147023-NVSC2023CL006320

PATIENT
  Age: 35 Year
  Sex: Male

DRUGS (7)
  1. KESIMPTA [Suspect]
     Active Substance: OFATUMUMAB
     Indication: Relapsing-remitting multiple sclerosis
     Dosage: 20 MG, QW
     Route: 058
     Dates: start: 20221228
  2. KESIMPTA [Suspect]
     Active Substance: OFATUMUMAB
     Dosage: UNK (WEEK 1)
     Route: 058
     Dates: start: 20230104
  3. KESIMPTA [Suspect]
     Active Substance: OFATUMUMAB
     Dosage: UNK (WEEK 2)
     Route: 058
     Dates: start: 20230111
  4. KESIMPTA [Suspect]
     Active Substance: OFATUMUMAB
     Dosage: UNK (WEEK 4)
     Route: 058
     Dates: start: 20230125
  5. KESIMPTA [Suspect]
     Active Substance: OFATUMUMAB
     Dosage: 20 MG, QMO
     Route: 058
     Dates: start: 20230222
  6. KESIMPTA [Suspect]
     Active Substance: OFATUMUMAB
     Dosage: 20 MG, QMO
     Route: 058
     Dates: start: 20230324
  7. KESIMPTA [Suspect]
     Active Substance: OFATUMUMAB
     Dosage: UNK
     Route: 065

REACTIONS (14)
  - Dizziness [Not Recovered/Not Resolved]
  - Cognitive disorder [Not Recovered/Not Resolved]
  - Asthenopia [Unknown]
  - Amnesia [Unknown]
  - Disturbance in attention [Unknown]
  - White blood cell count decreased [Not Recovered/Not Resolved]
  - Photophobia [Not Recovered/Not Resolved]
  - Hypoaesthesia [Not Recovered/Not Resolved]
  - Pain in extremity [Unknown]
  - Product availability issue [Unknown]
  - Product use issue [Unknown]
  - Incorrect dose administered [Recovered/Resolved]
  - Wrong technique in device usage process [Recovered/Resolved]
  - Accidental exposure to product [Recovered/Resolved]

NARRATIVE: CASE EVENT DATE: 20230104
